FAERS Safety Report 8187513-4 (Version None)
Quarter: 2012Q1

REPORT INFORMATION
  Report Type: 
  Country: None (occurrence: None)
  Receive Date: 20120217
  Receipt Date: 20110913
  Transmission Date: 20120608
  Serious: Yes (Other)
  Sender: FDA-Public Use
  Company Number: AUR-APL-2011-04530

PATIENT
  Age: 59 Year
  Sex: Male
  Weight: 83.9154 kg

DRUGS (2)
  1. LISINOPRIL/HCTZ (PRINZIDE /00977901/) [Concomitant]
  2. SIMVASTATIN [Suspect]
     Indication: BLOOD CHOLESTEROL INCREASED
     Dosage: (20 MG, 1 D), ORAL
     Route: 048
     Dates: start: 20110215, end: 20110317

REACTIONS (6)
  - PYREXIA [None]
  - HYPOAESTHESIA [None]
  - HEPATIC FAILURE [None]
  - SYNCOPE [None]
  - HEPATITIS [None]
  - VIRAL INFECTION [None]
